FAERS Safety Report 13523706 (Version 1)
Quarter: 2017Q2

REPORT INFORMATION
  Report Type: Spontaneous
  Country: US (occurrence: US)
  Receive Date: 20170508
  Receipt Date: 20170508
  Transmission Date: 20170830
  Serious: No
  Sender: FDA-Public Use
  Company Number: US-VIFOR (INTERNATIONAL) INC.-VIT-2017-01325

PATIENT
  Age: 56 Year
  Sex: Female

DRUGS (15)
  1. SODIUM BICARBONATE. [Concomitant]
     Active Substance: SODIUM BICARBONATE
  2. KEPPRA [Concomitant]
     Active Substance: LEVETIRACETAM
  3. MYCOPHENOLATE SODIUM [Concomitant]
     Active Substance: MYCOPHENOLATE SODIUM
  4. NITROFURANTOIN. [Concomitant]
     Active Substance: NITROFURANTOIN
  5. COLLAGENASE SANTYL [Concomitant]
     Active Substance: COLLAGENASE CLOSTRIDIUM HISTOLYTICUM
  6. PREDNISONE. [Concomitant]
     Active Substance: PREDNISONE
  7. PHENYLMERCURIC NITRATE. [Concomitant]
     Active Substance: PHENYLMERCURIC NITRATE
  8. ERGOCALCIFEROL. [Concomitant]
     Active Substance: ERGOCALCIFEROL
  9. PRAVASTATIN SODIUM. [Concomitant]
     Active Substance: PRAVASTATIN SODIUM
  10. PROBIOTIC FORMULA [Concomitant]
  11. NOVOLOG [Concomitant]
     Active Substance: INSULIN ASPART
  12. VELTASSA [Suspect]
     Active Substance: PATIROMER
     Indication: HYPERKALAEMIA
     Route: 048
     Dates: start: 20170124
  13. PRO-STAT 64 [Concomitant]
  14. TACROLIMUS. [Concomitant]
     Active Substance: TACROLIMUS
  15. SALINE FLUSH [Concomitant]
     Active Substance: SODIUM CHLORIDE

REACTIONS (1)
  - Treatment noncompliance [Unknown]

NARRATIVE: CASE EVENT DATE: 20170127
